FAERS Safety Report 25221737 (Version 1)
Quarter: 2025Q2

REPORT INFORMATION
  Report Type: Spontaneous
  Country: US (occurrence: US)
  Receive Date: 20250421
  Receipt Date: 20250421
  Transmission Date: 20250717
  Serious: Yes (Other)
  Sender: MYLAN
  Company Number: US-MYLANLABS-2025M1033998

PATIENT
  Age: 70 Year
  Sex: Male

DRUGS (16)
  1. DOXORUBICIN [Suspect]
     Active Substance: DOXORUBICIN
     Indication: Squamous cell carcinoma
     Dates: start: 201311, end: 201402
  2. DOXORUBICIN [Suspect]
     Active Substance: DOXORUBICIN
     Indication: Thymoma malignant
     Route: 065
     Dates: start: 201311, end: 201402
  3. DOXORUBICIN [Suspect]
     Active Substance: DOXORUBICIN
     Route: 065
     Dates: start: 201311, end: 201402
  4. DOXORUBICIN [Suspect]
     Active Substance: DOXORUBICIN
     Dates: start: 201311, end: 201402
  5. CISPLATIN [Suspect]
     Active Substance: CISPLATIN
     Indication: Squamous cell carcinoma
     Dates: start: 201311, end: 201402
  6. CISPLATIN [Suspect]
     Active Substance: CISPLATIN
     Indication: Thymoma malignant
     Route: 065
     Dates: start: 201311, end: 201402
  7. CISPLATIN [Suspect]
     Active Substance: CISPLATIN
     Route: 065
     Dates: start: 201311, end: 201402
  8. CISPLATIN [Suspect]
     Active Substance: CISPLATIN
     Dates: start: 201311, end: 201402
  9. CYCLOPHOSPHAMIDE [Suspect]
     Active Substance: CYCLOPHOSPHAMIDE
     Indication: Squamous cell carcinoma
     Dates: start: 201311, end: 201402
  10. CYCLOPHOSPHAMIDE [Suspect]
     Active Substance: CYCLOPHOSPHAMIDE
     Indication: Thymoma malignant
     Route: 065
     Dates: start: 201311, end: 201402
  11. CYCLOPHOSPHAMIDE [Suspect]
     Active Substance: CYCLOPHOSPHAMIDE
     Route: 065
     Dates: start: 201311, end: 201402
  12. CYCLOPHOSPHAMIDE [Suspect]
     Active Substance: CYCLOPHOSPHAMIDE
     Dates: start: 201311, end: 201402
  13. VINCRISTINE [Suspect]
     Active Substance: VINCRISTINE
     Indication: Squamous cell carcinoma
     Dates: start: 201311, end: 201402
  14. VINCRISTINE [Suspect]
     Active Substance: VINCRISTINE
     Indication: Thymoma malignant
     Route: 065
     Dates: start: 201311, end: 201402
  15. VINCRISTINE [Suspect]
     Active Substance: VINCRISTINE
     Route: 065
     Dates: start: 201311, end: 201402
  16. VINCRISTINE [Suspect]
     Active Substance: VINCRISTINE
     Dates: start: 201311, end: 201402

REACTIONS (2)
  - Drug ineffective [Unknown]
  - Disease progression [Unknown]

NARRATIVE: CASE EVENT DATE: 20140501
